FAERS Safety Report 9124013 (Version 1)
Quarter: 2013Q1

REPORT INFORMATION
  Report Type: Spontaneous
  Country: US (occurrence: US)
  Receive Date: 20130227
  Receipt Date: 20130227
  Transmission Date: 20140127
  Serious: Yes (Hospitalization)
  Sender: FDA-Public Use
  Company Number: US-ELI_LILLY_AND_COMPANY-US201301004259

PATIENT
  Age: 81 Year
  Sex: Male
  Weight: 65.76 kg

DRUGS (4)
  1. ALIMTA [Suspect]
     Indication: NON-SMALL CELL LUNG CANCER STAGE IIIA
     Dosage: 500 MG/M2, OTHER
     Route: 042
     Dates: start: 20130102, end: 20130104
  2. ALIMTA [Suspect]
     Dosage: 400 MG/M2, UNK
  3. FOLIC ACID [Concomitant]
     Dosage: 1 MG, QD
     Dates: start: 20130102
  4. VITAMIN B12 [Concomitant]
     Dosage: UNK
     Dates: start: 20130102

REACTIONS (2)
  - Intestinal obstruction [Recovered/Resolved]
  - Impaired gastric emptying [Recovered/Resolved]
